FAERS Safety Report 4383638-X (Version None)
Quarter: 2004Q2

REPORT INFORMATION
  Report Type: 
  Country: None (occurrence: None)
  Receive Date: 20040623
  Receipt Date: 20040126
  Transmission Date: 20050107
  Serious: Yes (Hospitalization)
  Sender: FDA-Public Use
  Company Number: US-GLAXOSMITHKLINE-A0496520A

PATIENT
  Age: 64 Year
  Sex: Female

DRUGS (10)
  1. AVANDIA [Suspect]
     Dosage: 8MG PER DAY
     Route: 048
     Dates: start: 20010102, end: 20020503
  2. PRINIVIL [Concomitant]
     Dosage: 20MG PER DAY
     Route: 048
  3. PREMARIN [Concomitant]
     Dosage: 1.25MG PER DAY
     Route: 048
  4. ZOLOFT [Concomitant]
     Dosage: 50MG PER DAY
     Route: 048
  5. NORTRIPTYLINE HCL [Concomitant]
     Dosage: 25MG AT NIGHT
     Route: 048
  6. ULTRAM [Concomitant]
     Indication: BACK PAIN
     Dosage: 50MG AS REQUIRED
     Route: 048
  7. LOPID [Concomitant]
     Dosage: 600MG TWICE PER DAY
     Route: 048
  8. MULTI-VITAMINS [Concomitant]
     Route: 048
  9. FOLIC ACID [Concomitant]
  10. KCL TAB [Concomitant]

REACTIONS (9)
  - CARDIAC FAILURE CONGESTIVE [None]
  - COOMBS NEGATIVE HAEMOLYTIC ANAEMIA [None]
  - DIASTOLIC DYSFUNCTION [None]
  - HYPERTENSION [None]
  - HYPERTENSIVE HEART DISEASE [None]
  - MITRAL VALVE INCOMPETENCE [None]
  - PLEURAL EFFUSION [None]
  - TRICUSPID VALVE INCOMPETENCE [None]
  - WARM TYPE HAEMOLYTIC ANAEMIA [None]
